FAERS Safety Report 8588625-3 (Version None)
Quarter: 2012Q3

REPORT INFORMATION
  Report Type: 
  Country: None (occurrence: None)
  Receive Date: 20120813
  Receipt Date: 20120808
  Transmission Date: 20120928
  Serious: Yes (Other)
  Sender: FDA-Public Use
  Company Number: PHHY2012AR069325

PATIENT
  Sex: Female

DRUGS (1)
  1. DIOVAN [Suspect]
     Indication: BLOOD PRESSURE
     Dosage: 80 MG, DAILY

REACTIONS (7)
  - SPINAL COLUMN INJURY [None]
  - FALL [None]
  - CYSTITIS [None]
  - PAIN [None]
  - JOINT INJURY [None]
  - URINE ODOUR ABNORMAL [None]
  - INJURY [None]
